FAERS Safety Report 12950080 (Version 1)
Quarter: 2016Q4

REPORT INFORMATION
  Report Type: Report from Study
  Country: US (occurrence: US)
  Receive Date: 20161116
  Receipt Date: 20161116
  Transmission Date: 20170207
  Serious: Yes (Hospitalization, Other)
  Sender: FDA-Public Use
  Company Number: US-009507513-1611USA004936

PATIENT
  Sex: Female

DRUGS (17)
  1. KEYTRUDA [Suspect]
     Active Substance: PEMBROLIZUMAB
     Indication: CHOLANGIOCARCINOMA
     Dosage: 140 MG, Q3W
     Route: 042
     Dates: start: 20160531, end: 20160920
  2. HEPARIN [Concomitant]
     Active Substance: HEPARIN SODIUM
  3. COLACE [Concomitant]
     Active Substance: DOCUSATE SODIUM
  4. PROTONIX [Concomitant]
     Active Substance: PANTOPRAZOLE SODIUM
  5. FERROUS SULFATE. [Concomitant]
     Active Substance: FERROUS SULFATE
  6. MAALOX (SIMETHICONE) [Concomitant]
  7. ASCORBIC ACID. [Concomitant]
     Active Substance: ASCORBIC ACID
  8. LOVENOX [Concomitant]
     Active Substance: ENOXAPARIN SODIUM
  9. HUMULIN R [Concomitant]
     Active Substance: INSULIN HUMAN
  10. LEVAQUIN [Concomitant]
     Active Substance: LEVOFLOXACIN
  11. TUMS [Concomitant]
     Active Substance: CALCIUM CARBONATE
  12. PROVENTIL [Concomitant]
     Active Substance: ALBUTEROL
  13. DUONEB [Concomitant]
     Active Substance: ALBUTEROL SULFATE\IPRATROPIUM BROMIDE
  14. ZOFRAN [Concomitant]
     Active Substance: ONDANSETRON HYDROCHLORIDE
  15. MAGNESIUM OXIDE. [Concomitant]
     Active Substance: MAGNESIUM OXIDE
  16. DULCOLAX NOS [Concomitant]
     Active Substance: BISACODYL OR DOCUSATE SODIUM
  17. PREDNISONE. [Concomitant]
     Active Substance: PREDNISONE
     Route: 048

REACTIONS (2)
  - Nephritis [Unknown]
  - Pneumonitis [Unknown]
